FAERS Safety Report 7724517-7 (Version None)
Quarter: 2011Q3

REPORT INFORMATION
  Report Type: 
  Country: None (occurrence: None)
  Receive Date: 20110901
  Receipt Date: 20110822
  Transmission Date: 20111222
  Serious: Yes (Other)
  Sender: FDA-Public Use
  Company Number: JP-GLAXOSMITHKLINE-B0742446A

PATIENT
  Age: 67 Year

DRUGS (1)
  1. ZANTAC [Suspect]
     Indication: PREMEDICATION
     Route: 042

REACTIONS (4)
  - FACE OEDEMA [None]
  - LOSS OF CONSCIOUSNESS [None]
  - ANAPHYLACTIC SHOCK [None]
  - BLOOD PRESSURE DECREASED [None]
